FAERS Safety Report 6007558-X (Version None)
Quarter: 2008Q4

REPORT INFORMATION
  Report Type: 
  Country: None (occurrence: None)
  Receive Date: 20081217
  Receipt Date: 20080508
  Transmission Date: 20090506
  Serious: Yes (Hospitalization)
  Sender: FDA-Public Use
  Company Number: US-ASTRAZENECA-2008UW09503

PATIENT
  Age: 87 Year
  Sex: Male

DRUGS (4)
  1. CRESTOR [Suspect]
     Route: 048
     Dates: start: 20080101
  2. PACERONE [Concomitant]
  3. COUMADIN [Concomitant]
  4. OMEPRAZOLE [Concomitant]

REACTIONS (2)
  - ABDOMINAL PAIN [None]
  - REFLUX OESOPHAGITIS [None]
